FAERS Safety Report 16767532 (Version 3)
Quarter: 2020Q1

REPORT INFORMATION
  Report Type: Report from Study
  Country: US (occurrence: US)
  Receive Date: 20190903
  Receipt Date: 20200116
  Transmission Date: 20200409
  Serious: No
  Sender: FDA-Public Use
  Company Number: US-SA-2019SA211955

PATIENT
  Age: 53 Year
  Sex: Female

DRUGS (8)
  1. DUPILUMAB [Suspect]
     Active Substance: DUPILUMAB
     Indication: ASTHMA
     Dosage: 600 MG ON DAY 15
     Route: 058
  2. DUPILUMAB [Suspect]
     Active Substance: DUPILUMAB
     Dosage: UNK UNK, 1X
     Route: 058
  3. OMEPRAZOLE. [Concomitant]
     Active Substance: OMEPRAZOLE
  4. STIOLTO RESPIMAT [Concomitant]
     Active Substance: OLODATEROL HYDROCHLORIDE\TIOTROPIUM BROMIDE MONOHYDRATE
  5. DUPILUMAB [Suspect]
     Active Substance: DUPILUMAB
     Dosage: UNK, QOW
     Route: 058
  6. MONTELUKAST [Concomitant]
     Active Substance: MONTELUKAST SODIUM
  7. ZYRTEC [Concomitant]
     Active Substance: CETIRIZINE HYDROCHLORIDE
  8. ALBUTEIN [Concomitant]
     Active Substance: ALBUMIN HUMAN

REACTIONS (2)
  - Dysphonia [Not Recovered/Not Resolved]
  - Extra dose administered [Unknown]
